FAERS Safety Report 14313426 (Version 1)
Quarter: 2017Q4

REPORT INFORMATION
  Report Type: Spontaneous
  Country: FR (occurrence: FR)
  Receive Date: 20171221
  Receipt Date: 20171221
  Transmission Date: 20180321
  Serious: Yes (Life-Threatening, Hospitalization)
  Sender: FDA-Public Use
  Company Number: FR-ABBVIE-17P-056-2200301-00

PATIENT
  Age: 58 Year
  Sex: Female

DRUGS (6)
  1. ABILIFY [Suspect]
     Active Substance: ARIPIPRAZOLE
     Indication: PRODUCT USED FOR UNKNOWN INDICATION
     Route: 048
  2. PIPERACILLIN/TAZOBACTAM [Suspect]
     Active Substance: PIPERACILLIN SODIUM\TAZOBACTAM SODIUM
     Indication: INFECTION
     Route: 042
     Dates: start: 20160607, end: 20160628
  3. CIPROFLOXACIN. [Suspect]
     Active Substance: CIPROFLOXACIN
     Indication: PRODUCT USED FOR UNKNOWN INDICATION
     Route: 048
     Dates: start: 20160607
  4. RIFADINE [Suspect]
     Active Substance: RIFAMPIN
     Indication: INFECTION
     Route: 042
     Dates: start: 20160607, end: 20160628
  5. DEPAKOTE [Suspect]
     Active Substance: DIVALPROEX SODIUM
     Indication: PRODUCT USED FOR UNKNOWN INDICATION
     Route: 048
  6. PANTOPRAZOLE [Suspect]
     Active Substance: PANTOPRAZOLE
     Indication: PRODUCT USED FOR UNKNOWN INDICATION
     Route: 065

REACTIONS (5)
  - Skin infection [Unknown]
  - Scar excision [Unknown]
  - Leukopenia [Unknown]
  - Osteosynthesis [Unknown]
  - Agranulocytosis [Not Recovered/Not Resolved]

NARRATIVE: CASE EVENT DATE: 20160615
